FAERS Safety Report 9579896 (Version 1)
Quarter: 2013Q3

REPORT INFORMATION
  Report Type: Spontaneous
  Country: US (occurrence: None)
  Receive Date: 20130930
  Receipt Date: 20130930
  Transmission Date: 20140515
  Serious: Yes (Disabling)
  Sender: FDA-Public Use
  Company Number: None

PATIENT
  Age: 75 Year
  Sex: Female

DRUGS (1)
  1. DETROL LA [Suspect]
     Indication: URINARY INCONTINENCE
     Dosage: 1 PILL; ONCE DAILY
     Route: 048

REACTIONS (3)
  - Oropharyngeal pain [None]
  - Musculoskeletal chest pain [None]
  - Chest pain [None]
